FAERS Safety Report 8805554 (Version 2)
Quarter: 2012Q4

REPORT INFORMATION
  Report Type: 
  Country: FR (occurrence: FR)
  Receive Date: 20120924
  Receipt Date: 20121010
  Transmission Date: 20130627
  Serious: Yes (Hospitalization, Other)
  Sender: FDA-Public Use
  Company Number: FR-ASTRAZENECA-2012SE72436

PATIENT
  Age: 39 Year
  Sex: Male
  Weight: 66 kg

DRUGS (7)
  1. XEROQUEL [Suspect]
     Indication: SCHIZOPHRENIA
     Route: 048
     Dates: start: 20120103, end: 20120220
  2. XEROQUEL [Suspect]
     Indication: SCHIZOPHRENIA
     Route: 048
     Dates: start: 20120221, end: 20120415
  3. XEROQUEL [Suspect]
     Indication: SCHIZOPHRENIA
     Route: 048
     Dates: start: 20120416, end: 20120814
  4. VITAMIN B1-B6 [Concomitant]
     Route: 048
     Dates: start: 2010
  5. NICOBION [Concomitant]
     Route: 048
     Dates: start: 2010
  6. VITAMIN B12 [Concomitant]
  7. VITAMIN PP [Concomitant]

REACTIONS (5)
  - Nervous system disorder [Not Recovered/Not Resolved]
  - Hypernatraemia [Recovering/Resolving]
  - Urinary tract infection [Unknown]
  - White blood cell count decreased [Recovered/Resolved with Sequelae]
  - Drug withdrawal syndrome [Recovered/Resolved with Sequelae]
